FAERS Safety Report 9790805 (Version 2)
Quarter: 2013Q4

REPORT INFORMATION
  Report Type: Spontaneous
  Country: US (occurrence: US)
  Receive Date: 20131231
  Receipt Date: 20131231
  Transmission Date: 20140711
  Serious: No
  Sender: FDA-Public Use
  Company Number: US-ASTRAZENECA-2002UW08668

PATIENT
  Age: 70 Year
  Sex: Female
  Weight: 90.7 kg

DRUGS (8)
  1. NEXIUM [Suspect]
     Indication: GASTROOESOPHAGEAL REFLUX DISEASE
     Route: 048
  2. PRILOSEC [Suspect]
     Indication: GASTROOESOPHAGEAL REFLUX DISEASE
     Route: 048
  3. ACCOLATE [Suspect]
     Indication: ASTHMA
     Route: 048
     Dates: start: 2001
  4. ACCOLATE [Suspect]
     Indication: ASTHMA
     Dosage: 20 MG, TWO TIMES A DAY, GENERIC
     Route: 048
     Dates: start: 2008
  5. NASACORT [Concomitant]
     Indication: NASAL DISORDER
  6. MAXZIDE [Concomitant]
  7. MAXAIR [Concomitant]
  8. XOPONEX [Concomitant]
     Indication: ASTHMA

REACTIONS (5)
  - Dyspnoea [Unknown]
  - Abdominal distension [Recovered/Resolved]
  - Wheezing [Unknown]
  - Local swelling [Recovered/Resolved]
  - Therapeutic response decreased [Unknown]
